FAERS Safety Report 4282882-X (Version None)
Quarter: 2004Q1

REPORT INFORMATION
  Report Type: 
  Country: None (occurrence: None)
  Receive Date: 20040130
  Receipt Date: 20030908
  Transmission Date: 20041129
  Serious: Yes (Other)
  Sender: FDA-Public Use
  Company Number: US-BRISTOL-MYERS SQUIBB COMPANY-12376265

PATIENT
  Sex: Female

DRUGS (10)
  1. SERZONE [Suspect]
     Indication: DEPRESSION
     Dosage: ^OFF FOR AWHILE^ IN 2000
     Route: 048
     Dates: start: 19990101
  2. CELEBREX [Concomitant]
  3. CARBIDOPA + LEVODOPA [Concomitant]
  4. CLONAZEPAM [Concomitant]
  5. CLOBETASOL PROPIONATE [Concomitant]
  6. METOPROLOL [Concomitant]
  7. PHENAZOPYRIDINE HCL TAB [Concomitant]
  8. SULFAMETHOXAZOLE + TRIMETHOPRIM [Concomitant]
  9. CENESTIN [Concomitant]
  10. NAPROXEN [Concomitant]

REACTIONS (3)
  - CHEST PAIN [None]
  - HEPATITIS [None]
  - RESTLESS LEGS SYNDROME [None]
